FAERS Safety Report 23643566 (Version 1)
Quarter: 2024Q1

REPORT INFORMATION
  Report Type: Spontaneous
  Country: DE (occurrence: DE)
  Receive Date: 20240318
  Receipt Date: 20240318
  Transmission Date: 20240410
  Serious: Yes (Other)
  Sender: FDA-Public Use
  Company Number: DE-Karo Pharma-2154491

PATIENT
  Age: 63 Year
  Sex: Male

DRUGS (4)
  1. TERBINAFINE [Suspect]
     Active Substance: TERBINAFINE
  2. HYDROCHLOROTHIAZIDE [Concomitant]
     Active Substance: HYDROCHLOROTHIAZIDE
  3. RAMIPRIL [Concomitant]
     Active Substance: RAMIPRIL
  4. METFORMIN [Concomitant]
     Active Substance: METFORMIN HYDROCHLORIDE

REACTIONS (8)
  - Acute generalised exanthematous pustulosis [Recovered/Resolved]
  - Skin exfoliation [Recovered/Resolved]
  - Pustule [Recovered/Resolved]
  - Neutrophilia [Recovered/Resolved]
  - C-reactive protein increased [Recovered/Resolved]
  - Leukocytosis [Recovered/Resolved]
  - Pyrexia [Recovered/Resolved]
  - Rash [Recovered/Resolved]
